FAERS Safety Report 11995238 (Version 3)
Quarter: 2016Q1

REPORT INFORMATION
  Report Type: Spontaneous
  Country: US (occurrence: US)
  Receive Date: 20160203
  Receipt Date: 20160329
  Transmission Date: 20160526
  Serious: Yes (Other)
  Sender: FDA-Public Use
  Company Number: US-B.I. PHARMACEUTICALS,INC./RIDGEFIELD-2016-BI-05750BP

PATIENT
  Age: 54 Year
  Sex: Female
  Weight: 65.77 kg

DRUGS (3)
  1. XANIDINE [Concomitant]
     Active Substance: RANITIDINE HYDROCHLORIDE
     Indication: PAIN
     Route: 048
     Dates: start: 200804, end: 200811
  2. MIRAPEX [Suspect]
     Active Substance: PRAMIPEXOLE DIHYDROCHLORIDE
     Indication: TREMOR
     Dosage: 4.5 MG
     Route: 048
     Dates: start: 200801, end: 200811
  3. DIAZEPAM. [Concomitant]
     Active Substance: DIAZEPAM
     Indication: PAIN
     Route: 048
     Dates: start: 200804, end: 200811

REACTIONS (5)
  - Tremor [Not Recovered/Not Resolved]
  - Multiple fractures [Recovered/Resolved]
  - Off label use [Recovered/Resolved]
  - Somnolence [Recovered/Resolved]
  - Ligament disorder [Not Recovered/Not Resolved]

NARRATIVE: CASE EVENT DATE: 200801
